FAERS Safety Report 6766561-2 (Version None)
Quarter: 2010Q2

REPORT INFORMATION
  Report Type: 
  Country: None (occurrence: None)
  Receive Date: 20100611
  Receipt Date: 20100531
  Transmission Date: 20101027
  Serious: Yes (Disabling)
  Sender: FDA-Public Use
  Company Number: JP-ROCHE-699326

PATIENT
  Sex: Female
  Weight: 68 kg

DRUGS (28)
  1. ACTEMRA [Suspect]
     Indication: RHEUMATOID ARTHRITIS
     Route: 041
     Dates: start: 20090205, end: 20090205
  2. ACTEMRA [Suspect]
     Route: 041
     Dates: start: 20090224, end: 20090224
  3. ACTEMRA [Suspect]
     Route: 041
     Dates: start: 20090401, end: 20090401
  4. ACTEMRA [Suspect]
     Route: 041
     Dates: start: 20090501, end: 20090501
  5. ACTEMRA [Suspect]
     Route: 041
     Dates: start: 20090527, end: 20090527
  6. ACTEMRA [Suspect]
     Route: 041
     Dates: start: 20090623, end: 20090623
  7. ACTEMRA [Suspect]
     Route: 041
     Dates: start: 20090723
  8. TAKEPRON [Suspect]
     Indication: PROPHYLAXIS
     Route: 048
  9. DEPAS [Concomitant]
     Dosage: DOSE FORM: PERORAL AGENT
     Route: 048
  10. DOGMATYL [Concomitant]
     Dosage: DOSE FORM: PERORAL AGENT
     Route: 048
  11. LENDORMIN [Concomitant]
     Route: 048
  12. LORAZEPAM [Concomitant]
     Route: 048
  13. HALCION [Concomitant]
     Route: 048
  14. PAXIL [Concomitant]
     Route: 048
  15. MEVALOTIN [Concomitant]
     Dosage: DOSE FORM: PERORAL AGENT
     Route: 048
  16. BERIZYM [Concomitant]
     Dosage: DOSE FORM: GRANULATED POWDER
     Route: 048
  17. FAMOTIDINE [Concomitant]
     Dosage: DOSE FORM: PERORAL AGENT
     Route: 048
  18. EPADEL [Concomitant]
     Route: 048
  19. ADALAT CC [Concomitant]
     Dosage: DOSE FORM: SUSTAINED-RELEASE TABLET
     Route: 048
  20. LOXONIN [Concomitant]
     Dosage: DOSE FORM: PERORAL AGENT
     Route: 048
  21. MAINTATE [Concomitant]
     Route: 048
  22. GLYBURIDE [Concomitant]
     Route: 048
  23. GASMOTIN [Concomitant]
     Route: 048
  24. ASPIRIN [Concomitant]
     Dosage: DOSE FORM: ENTERIC COATING DRUG
     Route: 048
  25. TAKEPRON [Concomitant]
     Route: 048
  26. ASTOMIN [Concomitant]
     Dosage: DOSE FORM: PERORAL AGENT
     Route: 048
  27. CODEINE SULFATE [Concomitant]
     Dosage: DOSE FORM: PERORAL AGENT
     Route: 048
  28. UNIPHYL [Concomitant]
     Dosage: DOSE FORM: SUSTAINED-RELEASE TABLET
     Route: 048

REACTIONS (1)
  - CEREBRAL INFARCTION [None]
